FAERS Safety Report 18292553 (Version 1)
Quarter: 2020Q3

REPORT INFORMATION
  Report Type: Report from Study
  Country: None (occurrence: BR)
  Receive Date: 20200922
  Receipt Date: 20200922
  Transmission Date: 20201103
  Serious: Yes (Other)
  Sender: FDA-Public Use
  Company Number: BR-ABBVIE-20K-020-3574215-00

PATIENT
  Sex: Female
  Weight: 85 kg

DRUGS (3)
  1. HUMIRA [Suspect]
     Active Substance: ADALIMUMAB
     Indication: PSORIATIC ARTHROPATHY
     Route: 058
     Dates: start: 20200206
  2. MAREVAN [Suspect]
     Active Substance: WARFARIN SODIUM
     Indication: THROMBOSIS
     Route: 065
     Dates: start: 2010
  3. MAREVAN [Suspect]
     Active Substance: WARFARIN SODIUM
     Indication: PULMONARY EMBOLISM

REACTIONS (18)
  - Urinary tract obstruction [Recovering/Resolving]
  - Hepatomegaly [Unknown]
  - Renal pain [Recovering/Resolving]
  - Kidney enlargement [Unknown]
  - Bladder discomfort [Recovering/Resolving]
  - Pollakiuria [Unknown]
  - Alanine aminotransferase abnormal [Recovered/Resolved]
  - Aspartate aminotransferase abnormal [Recovered/Resolved]
  - Haemorrhage urinary tract [Recovering/Resolving]
  - Blood urine present [Recovering/Resolving]
  - Flatulence [Unknown]
  - Back pain [Recovering/Resolving]
  - Pain in extremity [Recovering/Resolving]
  - Renal disorder [Recovering/Resolving]
  - Bladder pain [Recovering/Resolving]
  - Hepatic steatosis [Unknown]
  - Foot deformity [Recovering/Resolving]
  - Nephrolithiasis [Unknown]

NARRATIVE: CASE EVENT DATE: 2020
